FAERS Safety Report 24638032 (Version 2)
Quarter: 2024Q4

REPORT INFORMATION
  Report Type: Spontaneous
  Country: US (occurrence: US)
  Receive Date: 20241119
  Receipt Date: 20241121
  Transmission Date: 20250115
  Serious: No
  Sender: PFIZER
  Company Number: US-PFIZER INC-202400303056

PATIENT
  Age: 70 Year
  Sex: Female
  Weight: 104.33 kg

DRUGS (4)
  1. DEPO-MEDROL [Suspect]
     Active Substance: METHYLPREDNISOLONE ACETATE
     Indication: Arthralgia
     Dosage: UNK (40)
     Dates: start: 20241112
  2. NP THYROID [Concomitant]
     Active Substance: LEVOTHYROXINE\LIOTHYRONINE
     Indication: Hypothyroidism
     Dosage: 90 MG
  3. NP THYROID [Concomitant]
     Active Substance: LEVOTHYROXINE\LIOTHYRONINE
     Dosage: 15 MG
  4. SYNVISC [Concomitant]
     Active Substance: HYLAN G-F 20
     Indication: Arthralgia
     Dosage: UNK

REACTIONS (12)
  - Sinus disorder [Unknown]
  - Eye pain [Unknown]
  - Rhinalgia [Unknown]
  - Headache [Unknown]
  - Ear pain [Unknown]
  - Toothache [Unknown]
  - Ocular discomfort [Unknown]
  - Nasal discomfort [Unknown]
  - Ear discomfort [Unknown]
  - Sinus pain [Unknown]
  - Pain [Unknown]
  - Facial pain [Unknown]

NARRATIVE: CASE EVENT DATE: 20241101
